FAERS Safety Report 16818914 (Version 1)
Quarter: 2019Q3

REPORT INFORMATION
  Report Type: Spontaneous
  Country: US (occurrence: US)
  Receive Date: 20190917
  Receipt Date: 20190917
  Transmission Date: 20191005
  Serious: Yes (Death, Hospitalization)
  Sender: FDA-Public Use
  Company Number: US-TEVA-2019-US-1108523

PATIENT
  Age: 62 Year
  Sex: Male

DRUGS (2)
  1. HYDROXOCOBALAMIN [Suspect]
     Active Substance: HYDROXOCOBALAMIN
     Indication: TOXICITY TO VARIOUS AGENTS
     Route: 042
  2. SULFADIAZINE. [Suspect]
     Active Substance: SULFADIAZINE
     Indication: ANTIBIOTIC THERAPY
     Route: 061

REACTIONS (2)
  - Multiple organ dysfunction syndrome [Fatal]
  - Methaemoglobinaemia [Fatal]
